FAERS Safety Report 25437545 (Version 2)
Quarter: 2025Q2

REPORT INFORMATION
  Report Type: Spontaneous
  Country: US (occurrence: US)
  Receive Date: 20250616
  Receipt Date: 20250619
  Transmission Date: 20250716
  Serious: Yes (Hospitalization)
  Sender: Haleon PLC
  Company Number: US-HALEON-2246898

PATIENT

DRUGS (1)
  1. ALLI [Suspect]
     Active Substance: ORLISTAT
     Indication: Product used for unknown indication

REACTIONS (3)
  - Faeces hard [Unknown]
  - Drug ineffective [Unknown]
  - Product counterfeit [Unknown]
